FAERS Safety Report 7441093-7 (Version None)
Quarter: 2011Q2

REPORT INFORMATION
  Report Type: 
  Country: None (occurrence: None)
  Receive Date: 20110427
  Receipt Date: 20110414
  Transmission Date: 20111010
  Serious: Yes (Disabling, Other)
  Sender: FDA-Public Use
  Company Number: US-BAYER-201023161NA

PATIENT
  Age: 56 Year
  Sex: Female
  Weight: 68.027 kg

DRUGS (7)
  1. CALCIUM CARBONATE W/VITAMIN D NOS [Concomitant]
  2. LEVAQUIN [Concomitant]
     Dosage: UNK
     Dates: start: 20070901
  3. CIPRO [Suspect]
     Indication: PRODUCT USED FOR UNKNOWN INDICATION
     Dosage: UNK
     Dates: start: 20070701
  4. NEXIUM [Concomitant]
  5. MULTI-VITAMIN [Concomitant]
  6. METHOTREXAT [METHOTREXATE] [Concomitant]
  7. FOLIC ACID [Concomitant]

REACTIONS (7)
  - ABASIA [None]
  - RHEUMATOID ARTHRITIS [None]
  - OEDEMA PERIPHERAL [None]
  - ARTHRALGIA [None]
  - ADVERSE DRUG REACTION [None]
  - PAIN IN EXTREMITY [None]
  - JOINT WARMTH [None]
